FAERS Safety Report 15082041 (Version 1)
Quarter: 2018Q2

REPORT INFORMATION
  Report Type: Spontaneous
  Country: IT (occurrence: IT)
  Receive Date: 20180628
  Receipt Date: 20180628
  Transmission Date: 20180711
  Serious: Yes (Other)
  Sender: FDA-Public Use
  Company Number: IT-GLAXOSMITHKLINE-IT2018110766

PATIENT
  Age: 42 Year
  Sex: Male

DRUGS (2)
  1. TIVICAY [Suspect]
     Active Substance: DOLUTEGRAVIR SODIUM
     Indication: HIV ANTIBODY POSITIVE
     Dosage: 1 DF, QD
     Route: 048
  2. EPIVIR [Suspect]
     Active Substance: LAMIVUDINE
     Indication: HIV ANTIBODY POSITIVE
     Dosage: 1 DF, QD
     Route: 048

REACTIONS (3)
  - Depression [Unknown]
  - Suicidal ideation [Unknown]
  - Psychotic disorder [Unknown]
